FAERS Safety Report 4631505-6 (Version None)
Quarter: 2005Q1

REPORT INFORMATION
  Report Type: 
  Country: None (occurrence: None)
  Receive Date: 20050331
  Receipt Date: 20050331
  Transmission Date: 20050727
  Serious: Yes (Other)
  Sender: FDA-Public Use
  Company Number: None

PATIENT
  Age: 8 Year
  Sex: Female
  Weight: 33.5662 kg

DRUGS (5)
  1. TRIAMINIC VAPOR PATCH [Suspect]
     Indication: BRONCHIAL IRRITATION
     Dosage: 1 PATCH NIGHTLY TOPICAL
     Route: 061
     Dates: start: 20050208, end: 20050211
  2. TRIAMINIC VAPOR PATCH [Suspect]
     Indication: COUGH
     Dosage: 1 PATCH NIGHTLY TOPICAL
     Route: 061
     Dates: start: 20050208, end: 20050211
  3. TRIAMINIC VAPOR PATCH [Suspect]
     Indication: INSOMNIA
     Dosage: 1 PATCH NIGHTLY TOPICAL
     Route: 061
     Dates: start: 20050208, end: 20050211
  4. TRIAMINIC VAPOR PATCH [Suspect]
     Indication: NASOPHARYNGITIS
     Dosage: 1 PATCH NIGHTLY TOPICAL
     Route: 061
     Dates: start: 20050208, end: 20050211
  5. TRIAMINIC VAPOR PATCH [Suspect]
     Indication: THROAT IRRITATION
     Dosage: 1 PATCH NIGHTLY TOPICAL
     Route: 061
     Dates: start: 20050208, end: 20050211

REACTIONS (2)
  - CONVULSION [None]
  - DRUG TOXICITY [None]
